FAERS Safety Report 8440099-9 (Version None)
Quarter: 2012Q2

REPORT INFORMATION
  Report Type: 
  Country: None (occurrence: None)
  Receive Date: 20120615
  Receipt Date: 20120608
  Transmission Date: 20120825
  Serious: Yes (Other)
  Sender: FDA-Public Use
  Company Number: CO-ELI_LILLY_AND_COMPANY-CO201204008098

PATIENT
  Age: 65 Year
  Sex: Female

DRUGS (7)
  1. AMLODIPINE [Concomitant]
  2. CALCIUM [Concomitant]
     Dosage: UNK, UNKNOWN
     Route: 065
  3. FORTEO [Suspect]
     Dosage: 20 UG, QD
     Route: 058
     Dates: start: 20120417
  4. LOSARTAN POTASSIUM [Concomitant]
  5. FORTEO [Suspect]
     Indication: OSTEOPOROSIS
     Dosage: 20 UG, QD
     Route: 058
     Dates: start: 20120301, end: 20120415
  6. ALBUTEROL [Concomitant]
  7. THEOPHYLLINE [Concomitant]

REACTIONS (4)
  - CHOKING SENSATION [None]
  - INITIAL INSOMNIA [None]
  - INFLUENZA [None]
  - CHEST PAIN [None]
